FAERS Safety Report 7701081-X (Version None)
Quarter: 2011Q3

REPORT INFORMATION
  Report Type: 
  Country: None (occurrence: None)
  Receive Date: 20110817
  Receipt Date: 20110809
  Transmission Date: 20111222
  Serious: Yes (Death, Hospitalization)
  Sender: FDA-Public Use
  Company Number: JPI-P-014793

PATIENT
  Age: 80 Year
  Sex: Male

DRUGS (20)
  1. XYREM [Suspect]
     Indication: PRODUCT USED FOR UNKNOWN INDICATION
     Dosage: 4.5;6,7.5;8;9 GM (2.25 GM, 2 IN 1 D), ORAL
     Route: 048
     Dates: start: 20040514, end: 20040101
  2. XYREM [Suspect]
     Indication: PRODUCT USED FOR UNKNOWN INDICATION
     Dosage: 4.5;6,7.5;8;9 GM (2.25 GM, 2 IN 1 D), ORAL
     Route: 048
     Dates: start: 20040901
  3. XYREM [Suspect]
     Indication: PRODUCT USED FOR UNKNOWN INDICATION
     Dosage: 4.5;6,7.5;8;9 GM (2.25 GM, 2 IN 1 D), ORAL
     Route: 048
     Dates: start: 20101027, end: 20101108
  4. XYREM [Suspect]
     Indication: PRODUCT USED FOR UNKNOWN INDICATION
     Dosage: 4.5;6,7.5;8;9 GM (2.25 GM, 2 IN 1 D), ORAL
     Route: 048
     Dates: start: 20060803
  5. XYREM [Suspect]
     Indication: PRODUCT USED FOR UNKNOWN INDICATION
     Dosage: 4.5;6,7.5;8;9 GM (2.25 GM, 2 IN 1 D), ORAL
     Route: 048
     Dates: start: 20091124
  6. XYREM [Suspect]
     Indication: PRODUCT USED FOR UNKNOWN INDICATION
     Dosage: 4.5;6,7.5;8;9 GM (2.25 GM, 2 IN 1 D), ORAL
     Route: 048
     Dates: start: 20040105, end: 20040101
  7. XYREM [Suspect]
     Indication: PRODUCT USED FOR UNKNOWN INDICATION
     Dosage: 4.5;6,7.5;8;9 GM (2.25 GM, 2 IN 1 D), ORAL
     Route: 048
     Dates: start: 20040308, end: 20040101
  8. XYREM [Suspect]
     Indication: PRODUCT USED FOR UNKNOWN INDICATION
     Dosage: 4.5;6,7.5;8;9 GM (2.25 GM, 2 IN 1 D), ORAL
     Route: 048
     Dates: start: 20040127, end: 20040101
  9. XYREM [Suspect]
     Indication: PRODUCT USED FOR UNKNOWN INDICATION
     Dosage: 4.5;6,7.5;8;9 GM (2.25 GM, 2 IN 1 D), ORAL
     Route: 048
     Dates: start: 20090402, end: 20090101
  10. XYREM [Suspect]
     Indication: PRODUCT USED FOR UNKNOWN INDICATION
     Dosage: 4.5;6,7.5;8;9 GM (2.25 GM, 2 IN 1 D), ORAL
     Route: 048
     Dates: start: 20100111, end: 20100101
  11. FOLIC ACID [Concomitant]
  12. FUROSEMIDE [Concomitant]
  13. VENLAFAXINE HYDROCHLORIDE [Concomitant]
  14. ACETYLSALICYLIC ACID [Concomitant]
  15. FLUTICASONE PROPIONATE [Concomitant]
  16. WARFARIN SODIUM [Concomitant]
  17. DIGOXIN [Concomitant]
  18. TIOTROPIUM BROMIDE [Concomitant]
  19. SIMAVASTATIN [Concomitant]
  20. VALSARTAN [Concomitant]

REACTIONS (3)
  - CARDIAC FAILURE CONGESTIVE [None]
  - BACTERIAL TEST POSITIVE [None]
  - DRUG DOSE OMISSION [None]
